FAERS Safety Report 17699551 (Version 3)
Quarter: 2020Q2

REPORT INFORMATION
  Report Type: Report from Study
  Country: US (occurrence: US)
  Receive Date: 20200423
  Receipt Date: 20200527
  Transmission Date: 20200714
  Serious: Yes (Other)
  Sender: FDA-Public Use
  Company Number: US-ROCHE-2584173

PATIENT
  Sex: Male
  Weight: 77.18 kg

DRUGS (8)
  1. VITAMIN D3 [Concomitant]
     Active Substance: CHOLECALCIFEROL
     Route: 048
  2. BABY ASPIRIN [Concomitant]
     Active Substance: ASPIRIN
     Route: 048
  3. CURCUMIN [Concomitant]
     Active Substance: CURCUMIN
     Route: 048
  4. OCREVUS [Suspect]
     Active Substance: OCRELIZUMAB
     Route: 042
     Dates: start: 20171025
  5. PAROXETINE. [Concomitant]
     Active Substance: PAROXETINE
     Indication: ANGER
     Route: 048
     Dates: start: 2007
  6. OCREVUS [Suspect]
     Active Substance: OCRELIZUMAB
     Indication: PRIMARY PROGRESSIVE MULTIPLE SCLEROSIS
     Dosage: ADMINISTERED EVERY 6 MONTHS
     Route: 042
     Dates: start: 20170622
  7. BACLOFEN. [Concomitant]
     Active Substance: BACLOFEN
     Indication: MUSCLE SPASMS
     Dosage: TOTAL 30 MG THREE TIMES DAY
     Route: 048
     Dates: start: 2007
  8. PRAMIPEXOLE. [Concomitant]
     Active Substance: PRAMIPEXOLE
     Indication: RESTLESS LEGS SYNDROME
     Route: 048
     Dates: start: 2007

REACTIONS (5)
  - Urinary tract infection [Unknown]
  - Ill-defined disorder [Not Recovered/Not Resolved]
  - Prostatomegaly [Not Recovered/Not Resolved]
  - Drug ineffective [Unknown]
  - Joint lock [Not Recovered/Not Resolved]
